FAERS Safety Report 5722688-5 (Version None)
Quarter: 2008Q2

REPORT INFORMATION
  Report Type: 
  Country: None (occurrence: None)
  Receive Date: 20080429
  Receipt Date: 20080215
  Transmission Date: 20081010
  Serious: No
  Sender: FDA-Public Use
  Company Number: US-ASTRAZENECA-2007UW27615

PATIENT
  Age: 62 Year
  Sex: Male
  Weight: 80.3 kg

DRUGS (13)
  1. NEXIUM [Suspect]
     Indication: BARRETT'S OESOPHAGUS
     Route: 048
  2. NEXIUM [Suspect]
     Indication: GASTROOESOPHAGEAL REFLUX DISEASE
     Route: 048
  3. NEXIUM [Suspect]
     Route: 048
  4. NEXIUM [Suspect]
     Route: 048
  5. ATENOLOL [Concomitant]
  6. LISINOPRIL [Concomitant]
  7. ACTOS [Concomitant]
  8. PLAVIX [Concomitant]
  9. ZETIA [Concomitant]
  10. LIPITOR [Concomitant]
  11. REGULAR STRENGTH ASPIRIN [Concomitant]
  12. TUMS [Concomitant]
  13. PRILOSEC OTC [Concomitant]

REACTIONS (3)
  - CHEST PAIN [None]
  - DRUG INEFFECTIVE [None]
  - REFLUX OESOPHAGITIS [None]
